FAERS Safety Report 11697966 (Version 1)
Quarter: 2015Q4

REPORT INFORMATION
  Report Type: Spontaneous
  Country: US (occurrence: US)
  Receive Date: 20151104
  Receipt Date: 20151104
  Transmission Date: 20160304
  Serious: No
  Sender: FDA-Public Use
  Company Number: US-APOPHARMA USA, INC.-2012AP000945

PATIENT
  Age: 39 Year
  Sex: Female
  Weight: 48 kg

DRUGS (12)
  1. GUANFACINE. [Concomitant]
     Active Substance: GUANFACINE
     Route: 048
  2. FENTANYL. [Concomitant]
     Active Substance: FENTANYL
     Route: 061
  3. PINDOLOL. [Concomitant]
     Active Substance: PINDOLOL
     Route: 048
  4. DESFERAL [Concomitant]
     Active Substance: DEFEROXAMINE MESYLATE
     Route: 058
  5. HYDROXYUREA. [Concomitant]
     Active Substance: HYDROXYUREA
     Route: 048
  6. WELLBUTRIN /00700502/ [Concomitant]
     Route: 048
  7. FERRIPROX [Suspect]
     Active Substance: DEFERIPRONE
     Indication: HAEMOCHROMATOSIS
     Route: 048
     Dates: start: 20120210, end: 20120217
  8. LOVENOX [Concomitant]
     Active Substance: ENOXAPARIN SODIUM
     Route: 058
  9. SPIRONOLACTONE. [Concomitant]
     Active Substance: SPIRONOLACTONE
     Route: 048
  10. PHENERGAN [Concomitant]
     Active Substance: PROMETHAZINE HYDROCHLORIDE
     Route: 048
  11. LASIX [Concomitant]
     Active Substance: FUROSEMIDE
     Route: 048
  12. HYOSCYAMINE. [Concomitant]
     Active Substance: HYOSCYAMINE
     Route: 048

REACTIONS (3)
  - Vomiting [Recovered/Resolved]
  - Nausea [Recovered/Resolved]
  - Abdominal pain [Recovered/Resolved]

NARRATIVE: CASE EVENT DATE: 20120211
